FAERS Safety Report 6166730-9 (Version None)
Quarter: 2009Q2

REPORT INFORMATION
  Report Type: 
  Country: None (occurrence: None)
  Receive Date: 20090424
  Receipt Date: 20090402
  Transmission Date: 20091009
  Serious: Yes (Hospitalization)
  Sender: FDA-Public Use
  Company Number: FR-PFIZER INC-2009178606

PATIENT

DRUGS (2)
  1. BLINDED *PLACEBO [Suspect]
     Indication: CARDIAC FAILURE
     Dosage: UNK DF, UNK
     Route: 048
     Dates: start: 20080611
  2. BLINDED EPLERENONE [Suspect]
     Indication: CARDIAC FAILURE
     Dosage: UNK DF, UNK
     Route: 048
     Dates: start: 20080611

REACTIONS (1)
  - IMPLANTABLE DEFIBRILLATOR INSERTION [None]
